FAERS Safety Report 23763751 (Version 2)
Quarter: 2024Q4

REPORT INFORMATION
  Report Type: Report from Study
  Country: US (occurrence: US)
  Receive Date: 20240419
  Receipt Date: 20241019
  Transmission Date: 20250115
  Serious: Yes (Other)
  Sender: ABBVIE
  Company Number: US-ABBVIE-5722899

PATIENT
  Age: 75 Year
  Sex: Female

DRUGS (2)
  1. SKYRIZI [Suspect]
     Active Substance: RISANKIZUMAB-RZAA
     Indication: Psoriasis
     Dosage: DISCONTINUED IN 2021
     Route: 058
     Dates: start: 20210403
  2. SKYRIZI [Suspect]
     Active Substance: RISANKIZUMAB-RZAA
     Route: 058
     Dates: start: 20211029

REACTIONS (7)
  - Chronic lymphocytic leukaemia [Not Recovered/Not Resolved]
  - White blood cell count increased [Not Recovered/Not Resolved]
  - Nasopharyngitis [Recovering/Resolving]
  - Knee arthroplasty [Recovered/Resolved]
  - Multiple allergies [Unknown]
  - Aphonia [Unknown]
  - Polyarthritis [Recovering/Resolving]

NARRATIVE: CASE EVENT DATE: 20230201
